FAERS Safety Report 5924683-X (Version None)
Quarter: 2008Q4

REPORT INFORMATION
  Report Type: 
  Country: None (occurrence: None)
  Receive Date: 20081015
  Receipt Date: 20081001
  Transmission Date: 20090506
  Serious: Yes (Death, Hospitalization, Other)
  Sender: FDA-Public Use
  Company Number: 53058

PATIENT
  Age: 48 Year
  Sex: Female

DRUGS (2)
  1. IDARUBICIN HCL [Suspect]
     Indication: ACUTE MYELOID LEUKAEMIA
     Dosage: 40MG/M2,16MG/M2, 24MG/M2
  2. CYTARABINE [Suspect]

REACTIONS (2)
  - ACUTE LYMPHOCYTIC LEUKAEMIA [None]
  - FUNGAL INFECTION [None]
